FAERS Safety Report 20016354 (Version 1)
Quarter: 2021Q4

REPORT INFORMATION
  Report Type: Spontaneous
  Country: US (occurrence: None)
  Receive Date: 20211103
  Receipt Date: 20211103
  Transmission Date: 20220303
  Serious: Yes (Other)
  Sender: FDA-Public Use
  Company Number: None

PATIENT
  Age: 70 Year
  Sex: Male

DRUGS (1)
  1. TACROLIMUS [Suspect]
     Active Substance: TACROLIMUS
     Indication: Liver transplant
     Dosage: OTHER QUANTITY : 2CAP 1CAP;?OTHER FREQUENCY : QAM-QPM;?
     Route: 048
     Dates: start: 20210827

REACTIONS (1)
  - Small intestine operation [None]

NARRATIVE: CASE EVENT DATE: 20211102
